FAERS Safety Report 20964958 (Version 1)
Quarter: 2022Q2

REPORT INFORMATION
  Report Type: Spontaneous
  Country: US (occurrence: US)
  Receive Date: 20220616
  Receipt Date: 20220616
  Transmission Date: 20220721
  Serious: No
  Sender: FDA-Public Use
  Company Number: None

PATIENT

DRUGS (5)
  1. TRANYLCYPROMINE [Suspect]
     Active Substance: TRANYLCYPROMINE
     Indication: Depression
     Dosage: 10 MG, TABLET
     Route: 065
     Dates: start: 20210507
  2. TRANYLCYPROMINE [Suspect]
     Active Substance: TRANYLCYPROMINE
     Dosage: 20 MG, QD, AFTER 2 WEEKS
     Route: 065
  3. TRANYLCYPROMINE [Suspect]
     Active Substance: TRANYLCYPROMINE
     Dosage: 30 MG, QD,  TWO TO THREE WEEKS LATER
     Route: 065
  4. TRANYLCYPROMINE [Suspect]
     Active Substance: TRANYLCYPROMINE
     Dosage: 40 MG, QD, ABOUT TWO WEEKS LATER
     Route: 065
  5. TRANYLCYPROMINE [Suspect]
     Active Substance: TRANYLCYPROMINE
     Dosage: 50 MG, QD
     Route: 065

REACTIONS (7)
  - Loss of personal independence in daily activities [Unknown]
  - Hypotension [Unknown]
  - Asthenia [Unknown]
  - Hypertension [Unknown]
  - Fatigue [Unknown]
  - Adverse drug reaction [Unknown]
  - Therapeutic response decreased [Unknown]
